FAERS Safety Report 7429192-7 (Version None)
Quarter: 2011Q2

REPORT INFORMATION
  Report Type: 
  Country: None (occurrence: None)
  Receive Date: 20110421
  Receipt Date: 20110419
  Transmission Date: 20111010
  Serious: Yes (Hospitalization)
  Sender: FDA-Public Use
  Company Number: FR-ROCHE-772487

PATIENT
  Sex: Male

DRUGS (6)
  1. TAVANIC [Suspect]
     Route: 048
     Dates: start: 20100408, end: 20100411
  2. VASTAREL [Concomitant]
     Route: 048
     Dates: start: 20100406, end: 20100408
  3. ROCEPHIN [Suspect]
     Route: 042
     Dates: start: 20110408
  4. FORMOTEROL FUMARATE [Concomitant]
     Route: 048
     Dates: end: 20100408
  5. BUDESONIDE [Concomitant]
     Route: 048
     Dates: end: 20100408
  6. SPIRIVA [Concomitant]
     Dosage: START DATE: FOR A LONG TIME
     Route: 048
     Dates: end: 20100408

REACTIONS (2)
  - CONFUSIONAL STATE [None]
  - DELIRIUM [None]
